FAERS Safety Report 18134770 (Version 1)
Quarter: 2020Q3

REPORT INFORMATION
  Report Type: Spontaneous
  Country: US (occurrence: US)
  Receive Date: 20200811
  Receipt Date: 20200811
  Transmission Date: 20201103
  Serious: Yes (Other)
  Sender: FDA-Public Use
  Company Number: US-NOVOPROD-744562

PATIENT
  Age: 29 Year
  Sex: Female

DRUGS (1)
  1. SAXENDA [Suspect]
     Active Substance: LIRAGLUTIDE
     Indication: WEIGHT CONTROL
     Dosage: UNK
     Route: 058

REACTIONS (5)
  - Chronic fatigue syndrome [Unknown]
  - Autoimmune thyroiditis [Unknown]
  - Endocrine disorder [Unknown]
  - Weight increased [Unknown]
  - Fibromyalgia [Unknown]
